FAERS Safety Report 6612649-6 (Version None)
Quarter: 2010Q1

REPORT INFORMATION
  Report Type: 
  Country: None (occurrence: None)
  Receive Date: 20100303
  Receipt Date: 20100223
  Transmission Date: 20100710
  Serious: No
  Sender: FDA-Public Use
  Company Number: US-B.I. PHARMACEUTICALS,INC./RIDGEFIELD-2010-BP-02283BP

PATIENT
  Sex: Male

DRUGS (3)
  1. FLOMAX [Suspect]
  2. METOPROLOL TARTRATE [Concomitant]
     Indication: HYPERTENSION
  3. FENASTERIDE [Concomitant]

REACTIONS (4)
  - FEELING ABNORMAL [None]
  - SEMEN ANALYSIS ABNORMAL [None]
  - URINARY TRACT DISORDER [None]
  - URINE FLOW DECREASED [None]
